FAERS Safety Report 7771846-7 (Version None)
Quarter: 2011Q3

REPORT INFORMATION
  Report Type: 
  Country: None (occurrence: None)
  Receive Date: 20110922
  Receipt Date: 20110418
  Transmission Date: 20111222
  Serious: Yes (Other)
  Sender: FDA-Public Use
  Company Number: US-ASTRAZENECA-2007UW05818

PATIENT
  Age: 18919 Day
  Sex: Male
  Weight: 68.9 kg

DRUGS (4)
  1. PROZAC [Concomitant]
  2. SEROQUEL [Suspect]
     Route: 048
     Dates: start: 20040901, end: 20060101
  3. XANAX [Concomitant]
  4. REMERON [Concomitant]

REACTIONS (1)
  - PANCREATITIS [None]
